FAERS Safety Report 11932238 (Version 3)
Quarter: 2016Q4

REPORT INFORMATION
  Report Type: Spontaneous
  Country: DK (occurrence: DK)
  Receive Date: 20160120
  Receipt Date: 20161227
  Transmission Date: 20170206
  Serious: Yes (Hospitalization)
  Sender: FDA-Public Use
  Company Number: DK-PFIZER INC-2016016338

PATIENT
  Age: 73 Year
  Sex: Male

DRUGS (2)
  1. ALFUZOSIN [Concomitant]
     Active Substance: ALFUZOSIN
     Indication: BENIGN PROSTATIC HYPERPLASIA
     Dosage: 10 MG, DAILY
     Dates: start: 20150608, end: 20151207
  2. ZYVOXID [Suspect]
     Active Substance: LINEZOLID
     Indication: ENDOCARDITIS
     Dosage: 600 MG, 2X/DAY
     Route: 042
     Dates: start: 20151205, end: 20151228

REACTIONS (1)
  - Hepatitis toxic [Recovered/Resolved]

NARRATIVE: CASE EVENT DATE: 20151205
